FAERS Safety Report 4283221-0 (Version None)
Quarter: 2004Q1

REPORT INFORMATION
  Report Type: 
  Country: None (occurrence: None)
  Receive Date: 20040129
  Receipt Date: 20040120
  Transmission Date: 20041129
  Serious: Yes (Death)
  Sender: FDA-Public Use
  Company Number: JP-JNJFOC-20040104301

PATIENT
  Age: 74 Year
  Sex: Male

DRUGS (4)
  1. FENTANYL [Suspect]
     Indication: CANCER PAIN
     Dosage: 2.5 MG, 1 IN 3 DAY, TRANSDERMAL
     Route: 062
     Dates: start: 20031209, end: 20031211
  2. SOLDEM (OSMOSAL) [Concomitant]
  3. VITAMIN B COMPLEX (B-KOMPLEX ^LECIVA^) [Concomitant]
  4. BETAMETHASONE SODIUM PHOSPHATE [Concomitant]

REACTIONS (1)
  - DEATH [None]
